FAERS Safety Report 18989517 (Version 2)
Quarter: 2021Q1

REPORT INFORMATION
  Report Type: Spontaneous
  Country: BR (occurrence: BR)
  Receive Date: 20210310
  Receipt Date: 20210315
  Transmission Date: 20210420
  Serious: Yes (Other)
  Sender: FDA-Public Use
  Company Number: BR-ROCHE-2785716

PATIENT
  Age: 32 Year
  Sex: Male

DRUGS (1)
  1. LUCENTIS [Suspect]
     Active Substance: RANIBIZUMAB
     Indication: DIABETIC RETINOPATHY
     Route: 050

REACTIONS (4)
  - Tractional retinal detachment [Unknown]
  - Vitreous haemorrhage [Unknown]
  - Visual acuity reduced [Unknown]
  - Vitreous opacities [Unknown]
